FAERS Safety Report 7678340 (Version 6)
Quarter: 2015Q3

REPORT INFORMATION
  Report Type: Report from Study
  Country: DE (occurrence: DE)
  Receive Date: 20101122
  Receipt Date: 20150706
  Transmission Date: 20151125
  Serious: Yes (Hospitalization, Other)
  Sender: FDA-Public Use
  Company Number: PHHO2010DE05968

PATIENT
  Age: 42 Year
  Sex: Male
  Weight: 83.3 kg

DRUGS (16)
  1. IBUPROFEN. [Concomitant]
     Active Substance: IBUPROFEN
     Indication: PRODUCT USED FOR UNKNOWN INDICATION
     Route: 065
  2. FTY [Suspect]
     Active Substance: FINGOLIMOD HYDROCHLORIDE
     Dosage: 0.5 MG
     Dates: start: 20100325, end: 20100414
  3. RANITIDINE [Concomitant]
     Active Substance: RANITIDINE\RANITIDINE HYDROCHLORIDE
     Indication: GASTRITIS PROPHYLAXIS
     Route: 065
  4. FTY [Suspect]
     Active Substance: FINGOLIMOD HYDROCHLORIDE
     Indication: MULTIPLE SCLEROSIS
     Dosage: 1.25 MG, UNK
     Route: 048
     Dates: start: 20080912, end: 20081113
  5. FTY [Suspect]
     Active Substance: FINGOLIMOD HYDROCHLORIDE
     Dosage: 1.25 MG
     Route: 048
     Dates: start: 20090608
  6. HEPARIN-FRACTION, CALCIUM SALT [Concomitant]
     Indication: THROMBOSIS PROPHYLAXIS
     Route: 065
  7. INFLUENZA VIRUS VACCINE [Concomitant]
     Active Substance: INFLUENZA VIRUS VACCINE
     Indication: PROPHYLAXIS
     Route: 065
  8. FTY [Suspect]
     Active Substance: FINGOLIMOD HYDROCHLORIDE
     Dosage: NO TREATMENT
     Dates: start: 20081114, end: 20090607
  9. MAGNESIUM [Concomitant]
     Active Substance: MAGNESIUM
     Indication: SUPPLEMENTATION THERAPY
     Route: 065
  10. HOMEOPATHIC PREPARATIONS [Concomitant]
     Indication: PROPHYLAXIS
     Route: 065
  11. RIOPAN [Concomitant]
     Active Substance: MAGALDRATE
     Indication: DYSPEPSIA
     Route: 065
  12. SODIUM CARBONATE [Concomitant]
     Active Substance: SODIUM CARBONATE
     Indication: DYSPEPSIA
     Route: 065
     Dates: start: 20100411, end: 20100413
  13. HERBAL OIL NOS [Concomitant]
     Indication: PRODUCT USED FOR UNKNOWN INDICATION
     Route: 065
  14. AMANTADINE HYDROCHLORIDE. [Concomitant]
     Active Substance: AMANTADINE HYDROCHLORIDE
     Indication: FATIGUE
     Route: 065
  15. MAGALDRATE [Concomitant]
     Active Substance: MAGALDRATE
     Indication: DYSPEPSIA
     Route: 065
     Dates: start: 20100414, end: 20100415
  16. MEPIVACAINE [Concomitant]
     Active Substance: MEPIVACAINE\MEPIVACAINE HYDROCHLORIDE
     Indication: LOCAL ANAESTHESIA
     Route: 065

REACTIONS (14)
  - Jaundice [Recovered/Resolved]
  - Faeces pale [Recovered/Resolved]
  - Splenomegaly [Unknown]
  - Yellow skin [Recovered/Resolved]
  - Hepatic enzyme increased [Recovered/Resolved]
  - Decreased appetite [Recovered/Resolved]
  - Epigastric discomfort [Recovered/Resolved]
  - Hepatitis E [Recovered/Resolved]
  - Influenza like illness [Recovered/Resolved]
  - Chromaturia [Recovered/Resolved]
  - Abdominal pain [Recovered/Resolved]
  - Fatigue [Recovered/Resolved]
  - Pain in extremity [Unknown]
  - Alpha-1 anti-trypsin decreased [Unknown]

NARRATIVE: CASE EVENT DATE: 20081113
